FAERS Safety Report 12534596 (Version 1)
Quarter: 2016Q3

REPORT INFORMATION
  Report Type: Not Available
  Country: IN (occurrence: IN)
  Receive Date: 20160706
  Receipt Date: 20160706
  Transmission Date: 20161109
  Serious: Yes (Hospitalization)
  Sender: FDA-Public Use
  Company Number: IN-ANIPHARMA-2016-IN-000013

PATIENT
  Age: 80 Year
  Sex: Male

DRUGS (5)
  1. MOXONIDINE [Concomitant]
     Active Substance: MOXONIDINE
     Dosage: UNKNOWN
     Route: 065
  2. NITROGLYCERINE [Concomitant]
     Active Substance: NITROGLYCERIN
     Dosage: UNKNOWN
     Route: 065
  3. INDAPAMIDE (NON-SPECIFIC) [Suspect]
     Active Substance: INDAPAMIDE
     Dosage: UNKNOWN
     Route: 065
  4. AMLODIPINE [Concomitant]
     Active Substance: AMLODIPINE BESYLATE
     Dosage: UNKNOWN
     Route: 065
  5. DILTIAZEM. [Concomitant]
     Active Substance: DILTIAZEM
     Dosage: UNKNOWN
     Route: 065

REACTIONS (2)
  - Inappropriate antidiuretic hormone secretion [Recovered/Resolved]
  - Hypokalaemia [Recovered/Resolved]
